FAERS Safety Report 5860121-3 (Version None)
Quarter: 2008Q3

REPORT INFORMATION
  Report Type: 
  Country: None (occurrence: None)
  Receive Date: 20080827
  Receipt Date: 20080819
  Transmission Date: 20090109
  Serious: Yes (Hospitalization)
  Sender: FDA-Public Use
  Company Number: US-SANOFI-SYNTHELABO-A03200803023

PATIENT
  Sex: Male
  Weight: 87.5 kg

DRUGS (7)
  1. ELOXATIN [Suspect]
     Indication: COLON CANCER
     Dosage: 200 MG EVERY TWO WEEKS
     Route: 042
     Dates: start: 20080624, end: 20080624
  2. FLUOROURACIL [Concomitant]
     Indication: CHEMOTHERAPY
     Dosage: UNK
     Route: 065
     Dates: start: 20080312
  3. DECADRON SRC [Concomitant]
     Indication: DRUG USE FOR UNKNOWN INDICATION
     Dosage: UNK
     Route: 065
     Dates: start: 20080312
  4. ALOXI [Concomitant]
     Indication: PREMEDICATION
     Dosage: UNK
     Route: 065
     Dates: start: 20080312
  5. MAGNESIUM SULFATE [Concomitant]
     Indication: PREMEDICATION
     Dosage: UNK
     Route: 065
     Dates: start: 20080312
  6. CALCIUM GLUCONATE [Concomitant]
     Indication: PREMEDICATION
     Dosage: UNK
     Route: 065
     Dates: start: 20080312
  7. LEUCOVORIN CALCIUM [Concomitant]
     Indication: CHEMOTHERAPY
     Dosage: UNK
     Route: 065
     Dates: start: 20080312

REACTIONS (7)
  - CARDIAC ARREST [None]
  - CHOKING [None]
  - COLD SWEAT [None]
  - CONVULSION [None]
  - HYPERHIDROSIS [None]
  - HYPOTENSION [None]
  - UNRESPONSIVE TO STIMULI [None]
